FAERS Safety Report 18615492 (Version 12)
Quarter: 2021Q4

REPORT INFORMATION
  Report Type: Spontaneous
  Country: CA (occurrence: CA)
  Receive Date: 20201215
  Receipt Date: 20211116
  Transmission Date: 20220303
  Serious: Yes (Hospitalization)
  Sender: FDA-Public Use
  Company Number: CA-CELLTRION INC.-2020CA025105

PATIENT

DRUGS (17)
  1. INFLECTRA [Suspect]
     Active Substance: INFLIXIMAB-DYYB
     Indication: Colitis ulcerative
     Dosage: 5 MG/KG EVERY 0, 1, 5 AND THEN EVERY 8 WEEKS
     Route: 042
     Dates: start: 20200731, end: 20200810
  2. INFLECTRA [Suspect]
     Active Substance: INFLIXIMAB-DYYB
     Indication: Crohn^s disease
     Dosage: 5 MG/KG EVERY 0, 1, 5 AND THEN EVERY 8 WEEKS
     Route: 042
     Dates: start: 20200810
  3. INFLECTRA [Suspect]
     Active Substance: INFLIXIMAB-DYYB
     Dosage: 500MG EVERY 0, 1, 5 AND THEN EVERY 8 WEEKS
     Route: 042
     Dates: start: 20200916
  4. INFLECTRA [Suspect]
     Active Substance: INFLIXIMAB-DYYB
     Dosage: 600 MG, EVERY 8 WEEKS
     Route: 042
     Dates: start: 20200916, end: 20201114
  5. INFLECTRA [Suspect]
     Active Substance: INFLIXIMAB-DYYB
     Dosage: 600 MG, EVERY 8 WEEKS
     Route: 042
     Dates: start: 20201114, end: 20201114
  6. INFLECTRA [Suspect]
     Active Substance: INFLIXIMAB-DYYB
     Dosage: 600 MG, EVERY 8 WEEKS
     Route: 042
     Dates: start: 20201114, end: 20201114
  7. INFLECTRA [Suspect]
     Active Substance: INFLIXIMAB-DYYB
     Dosage: 1100 MG (10 MG/KG) EVERY 4 WEEKS
     Route: 042
     Dates: start: 20201207
  8. INFLECTRA [Suspect]
     Active Substance: INFLIXIMAB-DYYB
     Dosage: 1100 MG (10 MG/KG) EVERY 4 WEEKS
     Route: 042
     Dates: start: 20210105
  9. INFLECTRA [Suspect]
     Active Substance: INFLIXIMAB-DYYB
     Dosage: 1100 MG (10 MG/KG) EVERY 4 WEEKS
     Route: 042
     Dates: start: 20210302
  10. INFLECTRA [Suspect]
     Active Substance: INFLIXIMAB-DYYB
     Dosage: 1100 MG (10 MG/KG) EVERY 4 WEEKS
     Route: 042
     Dates: start: 20210405
  11. INFLECTRA [Suspect]
     Active Substance: INFLIXIMAB-DYYB
     Dosage: 1100 MG (10 MG/KG) EVERY 4 WEEKS
     Route: 042
     Dates: start: 20210426
  12. INFLECTRA [Suspect]
     Active Substance: INFLIXIMAB-DYYB
     Dosage: 1100 MG (10 MG/KG) EVERY 4 WEEKS
     Route: 042
     Dates: start: 20210602
  13. INFLECTRA [Suspect]
     Active Substance: INFLIXIMAB-DYYB
     Dosage: 1100 MG (10 MG/KG) EVERY 4 WEEKS
     Route: 042
     Dates: start: 20210628
  14. MESALAMINE [Concomitant]
     Active Substance: MESALAMINE
     Dosage: 1 DF (DOSAGE INFO UNK)
     Route: 065
     Dates: start: 2017
  15. PANTOPRAZOLE [Concomitant]
     Active Substance: PANTOPRAZOLE
     Dosage: 1 DF (DOSAGE INFO UNK )
     Route: 065
  16. PREDNISONE [Concomitant]
     Active Substance: PREDNISONE
     Dosage: 1 DF DOSAGE INFO UNKTAPERING DOSE
     Route: 048
  17. ERGOCALCIFEROL [Concomitant]
     Active Substance: ERGOCALCIFEROL
     Dosage: 1 DF
     Route: 048

REACTIONS (6)
  - Condition aggravated [Not Recovered/Not Resolved]
  - Off label use [Unknown]
  - Off label use [Unknown]
  - Intentional product use issue [Unknown]
  - COVID-19 [Recovering/Resolving]
  - Nasopharyngitis [Unknown]

NARRATIVE: CASE EVENT DATE: 20200731
